FAERS Safety Report 10736454 (Version 2)
Quarter: 2019Q4

REPORT INFORMATION
  Report Type: Spontaneous
  Country: DK (occurrence: DK)
  Receive Date: 20150126
  Receipt Date: 20191021
  Transmission Date: 20200122
  Serious: Yes (Death, Other)
  Sender: FDA-Public Use
  Company Number: DK-ASTRAZENECA-2015SE05775

PATIENT
  Age: 29521 Day
  Sex: Female

DRUGS (9)
  1. NITRAZEPAM [Concomitant]
     Active Substance: NITRAZEPAM
     Indication: INSOMNIA
     Dates: start: 2011
  2. ALPROX [Concomitant]
     Active Substance: ALPRAZOLAM
     Indication: RESTLESSNESS
  3. PERSANTIN [Concomitant]
     Active Substance: DIPYRIDAMOLE
     Indication: THROMBOSIS PROPHYLAXIS
     Dates: start: 2010
  4. KEPPRA [Concomitant]
     Active Substance: LEVETIRACETAM
     Indication: EPILEPSY
  5. CIPROXIN [Concomitant]
     Active Substance: CIPROFLOXACIN
     Indication: PRODUCT USED FOR UNKNOWN INDICATION
  6. MEROPENEM. [Suspect]
     Active Substance: MEROPENEM
     Indication: SEPSIS
     Dosage: 1.0G UNKNOWN
     Route: 042
     Dates: start: 20140717, end: 20140717
  7. LYRICA [Concomitant]
     Active Substance: PREGABALIN
     Indication: EPILEPSY
  8. UNIKALK BASIC [Concomitant]
     Indication: PRODUCT USED FOR UNKNOWN INDICATION
  9. TRIOBE [Concomitant]
     Indication: SUPPLEMENTATION THERAPY
     Dates: start: 2013

REACTIONS (10)
  - Pulmonary embolism [Fatal]
  - Blood pressure decreased [Not Recovered/Not Resolved]
  - Arrhythmia [Not Recovered/Not Resolved]
  - Dyspnoea [Not Recovered/Not Resolved]
  - Hyperkalaemia [Not Recovered/Not Resolved]
  - Cyanosis [Not Recovered/Not Resolved]
  - Angioedema [Not Recovered/Not Resolved]
  - Anaphylactic shock [Fatal]
  - Cardiac arrest [Fatal]
  - Disease recurrence [Not Recovered/Not Resolved]

NARRATIVE: CASE EVENT DATE: 20140717
